FAERS Safety Report 16473916 (Version 1)
Quarter: 2019Q2

REPORT INFORMATION
  Report Type: Spontaneous
  Country: IT (occurrence: IT)
  Receive Date: 20190625
  Receipt Date: 20190625
  Transmission Date: 20190711
  Serious: Yes (Death, Hospitalization, Other)
  Sender: FDA-Public Use
  Company Number: IT-PFIZER INC-2019268610

PATIENT
  Age: 72 Year
  Sex: Female
  Weight: 160 kg

DRUGS (5)
  1. SILDENAFIL CITRATE. [Suspect]
     Active Substance: SILDENAFIL CITRATE
     Indication: PULMONARY ARTERIAL HYPERTENSION
     Dosage: 60 MG, 1X/DAY (20MG 3X/DAY)
     Route: 048
     Dates: start: 2018, end: 20190329
  2. FUROSEMIDE. [Concomitant]
     Active Substance: FUROSEMIDE
     Indication: RIGHT VENTRICULAR FAILURE
     Dosage: UNK (25 UNK, EVERY DAY)
     Route: 048
  3. OPSUMIT [Suspect]
     Active Substance: MACITENTAN
     Indication: PULMONARY ARTERIAL HYPERTENSION
     Dosage: 10 MG, 1X/DAY
     Route: 048
     Dates: start: 2017, end: 20190329
  4. UPTRAVI [Suspect]
     Active Substance: SELEXIPAG
     Indication: PULMONARY ARTERIAL HYPERTENSION
     Dosage: 1600 UG, 1X/DAY (800 UG, 2X/DAY)
     Route: 048
     Dates: start: 201901, end: 20190329
  5. OXYGEN. [Concomitant]
     Active Substance: OXYGEN
     Dosage: UNK

REACTIONS (4)
  - Gastroenteritis [Fatal]
  - Sepsis [Fatal]
  - Acute respiratory failure [Fatal]
  - Pneumonia aspiration [Fatal]
